FAERS Safety Report 17153536 (Version 31)
Quarter: 2021Q1

REPORT INFORMATION
  Report Type: Report from Study
  Country: BE (occurrence: BE)
  Receive Date: 20191213
  Receipt Date: 20210319
  Transmission Date: 20210419
  Serious: Yes (Hospitalization, Other)
  Sender: FDA-Public Use
  Company Number: BE-BAYER-2019-159740

PATIENT
  Age: 71 Year
  Sex: Female

DRUGS (27)
  1. STIVARGA [Suspect]
     Active Substance: REGORAFENIB
     Indication: HEPATOCELLULAR CARCINOMA
     Dosage: 80 MG DAILY
     Dates: start: 20190826, end: 20200320
  2. GLUCOPHAGE [Concomitant]
     Active Substance: METFORMIN HYDROCHLORIDE
     Indication: DIABETES MELLITUS
     Dosage: UNK
  3. CLARITHROMYCIN. [Concomitant]
     Active Substance: CLARITHROMYCIN
     Indication: BACTERIAL INFECTION
     Dosage: UNK
     Dates: start: 20191023, end: 20191031
  4. JANUVIA [Concomitant]
     Active Substance: SITAGLIPTIN PHOSPHATE
     Indication: DIABETES MELLITUS
     Dosage: 100 MG/D
     Dates: start: 20191030
  5. DOLZAM [Concomitant]
     Active Substance: TRAMADOL HYDROCHLORIDE
     Indication: PAIN
     Dosage: UNK
     Dates: start: 202012
  6. STIVARGA [Suspect]
     Active Substance: REGORAFENIB
     Indication: HEPATOCELLULAR CARCINOMA
     Dosage: UNK
  7. AFFUSINE [Concomitant]
     Indication: SKIN BACTERIAL INFECTION
     Dosage: UNK
     Dates: start: 20191023
  8. PHOSPHONEUROS [Concomitant]
     Active Substance: CALCIUM PHOSPHATE, DIBASIC, ANHYDROUS\MAGNESIUM GLYCEROPHOSPHATE\PHOSPHORIC ACID\SODIUM PHOSPHATE, DIBASIC
     Dosage: 50DR 3X/D
     Dates: start: 201912
  9. RHINA [Concomitant]
     Dosage: UNK
     Dates: start: 20200117
  10. STIVARGA [Suspect]
     Active Substance: REGORAFENIB
     Indication: HEPATOCELLULAR CARCINOMA
     Dosage: 80 MG DAILY
     Dates: start: 20200330, end: 20200403
  11. POTASSIUM CHLORIDE. [Concomitant]
     Active Substance: POTASSIUM CHLORIDE
     Dosage: 600 2 CO/D
     Dates: start: 20190607
  12. ACULARE [Concomitant]
     Dosage: UNK
     Dates: start: 20190625
  13. MEDROL [Concomitant]
     Active Substance: METHYLPREDNISOLONE
     Indication: STEROID THERAPY
     Dosage: 16 MG
     Dates: start: 20190708, end: 2019
  14. MEDROL [Concomitant]
     Active Substance: METHYLPREDNISOLONE
     Indication: STEROID THERAPY
     Dosage: DAILY DOSE 4 MG
     Dates: start: 20190930
  15. RISPERDAL [Concomitant]
     Active Substance: RISPERIDONE
     Dosage: UNK
  16. FUCICORT [Concomitant]
     Active Substance: BETAMETHASONE VALERATE\FUSIDIC ACID
     Indication: SKIN INFECTION
     Dosage: UNK
     Dates: start: 201910
  17. STIVARGA [Suspect]
     Active Substance: REGORAFENIB
     Indication: HEPATOCELLULAR CARCINOMA
     Dosage: DAILY DOSE 80 MG
     Dates: start: 20200427, end: 20200914
  18. AMOXICILLIN. [Concomitant]
     Active Substance: AMOXICILLIN
     Dosage: 1000 MG
     Dates: start: 20200121, end: 20200201
  19. HIRUDOID [Concomitant]
     Active Substance: GLYCOSAMINOGLYCANS
     Dosage: UNK
  20. TARDYFERON [Concomitant]
     Active Substance: FERROUS SULFATE
     Indication: IRON DEFICIENCY ANAEMIA
     Dosage: DAILY DOSE 80 MG
     Dates: start: 20200117
  21. STIVARGA [Suspect]
     Active Substance: REGORAFENIB
     Indication: HEPATOCELLULAR CARCINOMA
     Dosage: DAILY DOSE 80 MG
     Dates: end: 20210312
  22. NICOTIBINE [Concomitant]
     Active Substance: ISONIAZID
     Indication: TUBERCULOSIS
     Dosage: UNK
     Dates: start: 20190705
  23. CLARITHROMYCIN. [Concomitant]
     Active Substance: CLARITHROMYCIN
     Indication: RESPIRATORY TRACT INFECTION
     Dosage: 500 MG
     Dates: start: 20200117, end: 20200127
  24. MACROGOL;POTASSIUM CHLORIDE;SODIUM BICARBONATE;SODIUM CHLORIDE [Concomitant]
     Active Substance: POLYETHYLENE GLYCOL\POTASSIUM CHLORIDE\SODIUM BICARBONATE\SODIUM CHLORIDE
     Indication: CONSTIPATION
     Dosage: UNK
     Dates: start: 202005
  25. STIVARGA [Suspect]
     Active Substance: REGORAFENIB
     Indication: HEPATOCELLULAR CARCINOMA
     Dosage: 80 MG DAILY
     Dates: start: 20190613, end: 2019
  26. CEFUROXIME. [Suspect]
     Active Substance: CEFUROXIME
     Indication: BACTERIAL INFECTION
     Dosage: 500 MG DAILY
     Dates: start: 201911
  27. MACROGOL;POTASSIUM CHLORIDE;SODIUM BICARBONATE;SODIUM CHLORIDE [Concomitant]
     Active Substance: POLYETHYLENE GLYCOL\POTASSIUM CHLORIDE\SODIUM BICARBONATE\SODIUM CHLORIDE
     Indication: CONSTIPATION
     Dosage: UNK
     Dates: start: 202005

REACTIONS (53)
  - Muscular weakness [Not Recovered/Not Resolved]
  - Oropharyngeal pain [None]
  - White blood cell count decreased [Unknown]
  - Depressed mood [Recovering/Resolving]
  - Headache [Recovering/Resolving]
  - Infection [Not Recovered/Not Resolved]
  - Constipation [Recovering/Resolving]
  - Change of bowel habit [Recovered/Resolved]
  - Chills [Recovered/Resolved]
  - Sneezing [Recovered/Resolved]
  - Skin ulcer [Recovered/Resolved]
  - Dysphonia [Recovering/Resolving]
  - Mucosal inflammation [Recovering/Resolving]
  - Bronchitis [Recovered/Resolved]
  - Abdominal pain upper [Recovering/Resolving]
  - Chest pain [Recovering/Resolving]
  - Dysphonia [Not Recovered/Not Resolved]
  - Off label use [None]
  - Fatigue [Not Recovered/Not Resolved]
  - Abdominal pain [Recovering/Resolving]
  - Diarrhoea [None]
  - Joint swelling [Recovered/Resolved]
  - Laboratory test abnormal [None]
  - Feeling abnormal [Recovering/Resolving]
  - Facial pain [Recovered/Resolved]
  - Blood pressure increased [Recovering/Resolving]
  - Muscular weakness [Not Recovered/Not Resolved]
  - Blood glucose increased [Recovering/Resolving]
  - Toothache [Not Recovered/Not Resolved]
  - Sepsis [Recovering/Resolving]
  - Muscular weakness [Not Recovered/Not Resolved]
  - Joint swelling [Recovered/Resolved]
  - Blood iron decreased [Not Recovered/Not Resolved]
  - Alopecia [Not Recovered/Not Resolved]
  - Neck pain [Recovering/Resolving]
  - Weight decreased [Recovering/Resolving]
  - Scan abnormal [None]
  - Cough [Recovered/Resolved]
  - Balance disorder [Not Recovered/Not Resolved]
  - Abdominal pain upper [Recovering/Resolving]
  - Weight decreased [Recovering/Resolving]
  - Dyspnoea [Recovered/Resolved]
  - Hepatocellular carcinoma [None]
  - Tooth abscess [Recovered/Resolved]
  - Rhinorrhoea [Not Recovered/Not Resolved]
  - Palmar-plantar erythrodysaesthesia syndrome [Recovering/Resolving]
  - Decreased appetite [Recovered/Resolved]
  - Arthralgia [Recovered/Resolved]
  - Abdominal pain [Recovered/Resolved]
  - Hyperaesthesia teeth [Unknown]
  - Osteoarthritis [Not Recovered/Not Resolved]
  - Dizziness [Not Recovered/Not Resolved]
  - Pain in extremity [Not Recovered/Not Resolved]

NARRATIVE: CASE EVENT DATE: 201908
